FAERS Safety Report 8827244 (Version 5)
Quarter: 2012Q4

REPORT INFORMATION
  Report Type: 
  Country: US (occurrence: US)
  Receive Date: 20121008
  Receipt Date: 20121221
  Transmission Date: 20130627
  Serious: Yes (Other)
  Sender: FDA-Public Use
  Company Number: US-AMGEN-USASP2012061950

PATIENT
  Age: 47 Year
  Sex: Female
  Weight: 59.86 kg

DRUGS (7)
  1. PROCRIT [Suspect]
     Indication: ANAEMIA
     Dosage: 40000 unit, qwk
     Route: 058
     Dates: start: 20120823, end: 20120928
  2. NEUPOGEN [Suspect]
     Indication: NEUTROPENIA
     Dosage: 300 mcg, qwk
     Route: 058
     Dates: start: 20120802
  3. RIBAVIRIN [Suspect]
     Indication: HEPATITIS C
     Dosage: 400 mg, 2 times/wk
     Route: 048
     Dates: start: 20120706
  4. RIBAVIRIN [Suspect]
     Dosage: 200 mg, 2 times/wk
  5. PEGASYS [Concomitant]
     Indication: HEPATITIS C
     Dosage: 180 mcg/0.5 ml
     Route: 058
     Dates: start: 20120706
  6. FLUOXETINE [Concomitant]
     Indication: DEPRESSION
     Dosage: 20 mg, qd
     Route: 048
     Dates: start: 20120424
  7. MOBIC [Concomitant]
     Dosage: 7.5 mg, qd
     Route: 048

REACTIONS (3)
  - Aplasia pure red cell [Unknown]
  - Drug ineffective [Not Recovered/Not Resolved]
  - Anaemia [Unknown]
